FAERS Safety Report 11022336 (Version 1)
Quarter: 2015Q2

REPORT INFORMATION
  Report Type: Spontaneous
  Country: US (occurrence: US)
  Receive Date: 20150413
  Receipt Date: 20150413
  Transmission Date: 20150821
  Serious: Yes (Other)
  Sender: FDA-Public Use
  Company Number: US-ASTELLAS-2010US004712

PATIENT
  Age: 26 Year
  Sex: Male

DRUGS (2)
  1. PROGRAF [Suspect]
     Active Substance: TACROLIMUS\TACROLIMUS ANHYDROUS
     Indication: RENAL TRANSPLANT
     Route: 048
     Dates: start: 20080522
  2. PROGRAF [Suspect]
     Active Substance: TACROLIMUS\TACROLIMUS ANHYDROUS
     Indication: PROPHYLAXIS AGAINST TRANSPLANT REJECTION

REACTIONS (5)
  - Kidney transplant rejection [Not Recovered/Not Resolved]
  - Small intestinal obstruction [Unknown]
  - Hypertension [Not Recovered/Not Resolved]
  - Viral infection [Recovering/Resolving]
  - Viraemia [Unknown]

NARRATIVE: CASE EVENT DATE: 20100906
